FAERS Safety Report 5485871-2 (Version None)
Quarter: 2007Q4

REPORT INFORMATION
  Report Type: 
  Country: None (occurrence: None)
  Receive Date: 20071015
  Receipt Date: 20071002
  Transmission Date: 20080405
  Serious: Yes (Other)
  Sender: FDA-Public Use
  Company Number: BE-ELI_LILLY_AND_COMPANY-BE200709001430

PATIENT
  Sex: Female
  Weight: 65 kg

DRUGS (4)
  1. CYMBALTA [Suspect]
     Indication: DEPRESSION
     Dosage: 60 MG, DAILY (1/D)
     Route: 048
     Dates: start: 20070821, end: 20070903
  2. ABILIFY [Concomitant]
     Indication: BIPOLAR DISORDER
     Dates: start: 20070820
  3. MANIPREX [Concomitant]
     Indication: BIPOLAR DISORDER
     Dates: start: 20070820
  4. UTROGESTAN [Concomitant]
     Indication: MENOPAUSAL SYMPTOMS
     Dates: start: 20070201

REACTIONS (2)
  - ASPARTATE AMINOTRANSFERASE INCREASED [None]
  - GAMMA-GLUTAMYLTRANSFERASE INCREASED [None]
